FAERS Safety Report 5473453-8 (Version None)
Quarter: 2007Q4

REPORT INFORMATION
  Report Type: 
  Country: None (occurrence: None)
  Receive Date: 20071001
  Receipt Date: 20070920
  Transmission Date: 20080405
  Serious: Yes (Other)
  Sender: FDA-Public Use
  Company Number: PE-ELI_LILLY_AND_COMPANY-PE200709004719

PATIENT
  Age: 20 Year
  Sex: Male

DRUGS (4)
  1. ZYPREXA [Suspect]
     Dosage: 10 MG, 2/D
     Route: 030
  2. ZYPREXA [Suspect]
     Dosage: 10 MG, DAILY (1/D)
     Route: 030
  3. ZYPREXA [Suspect]
     Dosage: 10 MG, DAILY (1/D)
     Route: 030
     Dates: start: 20070920
  4. ISOTRETINOIN [Concomitant]
     Indication: ACNE
     Dosage: UNK, UNKNOWN
     Route: 065

REACTIONS (1)
  - LEUKOPENIA [None]
